FAERS Safety Report 7842405-2 (Version None)
Quarter: 2011Q4

REPORT INFORMATION
  Report Type: 
  Country: None (occurrence: None)
  Receive Date: 20111025
  Receipt Date: 20111018
  Transmission Date: 20120403
  Serious: Yes (Hospitalization)
  Sender: FDA-Public Use
  Company Number: FR-SANOFI-AVENTIS-2011SA068256

PATIENT
  Age: 46 Year
  Sex: Male

DRUGS (4)
  1. MULTAQ [Suspect]
     Route: 048
     Dates: start: 20111017, end: 20111017
  2. MULTAQ [Suspect]
     Indication: INTENTIONAL OVERDOSE
     Route: 048
  3. TRIMEPRAZINE TARTRATE [Concomitant]
  4. PERINDOPRIL ERBUMINE [Concomitant]

REACTIONS (1)
  - MULTIPLE DRUG OVERDOSE INTENTIONAL [None]
